FAERS Safety Report 6987185-8 (Version None)
Quarter: 2010Q3

REPORT INFORMATION
  Report Type: 
  Country: None (occurrence: None)
  Receive Date: 20100916
  Receipt Date: 20100903
  Transmission Date: 20110219
  Serious: Yes (Hospitalization)
  Sender: FDA-Public Use
  Company Number: DE-PFIZER INC-2010111519

PATIENT
  Age: 51 Year
  Sex: Male
  Weight: 78 kg

DRUGS (4)
  1. BLINDED *NO SUBJECT DRUG [Suspect]
     Indication: ALCOHOLISM
     Dosage: UNK
     Route: 048
     Dates: start: 20100818, end: 20100827
  2. BLINDED *PLACEBO [Suspect]
     Indication: ALCOHOLISM
     Dosage: UNK
     Route: 048
     Dates: start: 20100818, end: 20100827
  3. VARENICLINE TARTRATE [Suspect]
     Indication: ALCOHOLISM
     Dosage: UNK
     Route: 048
     Dates: start: 20100818, end: 20100827
  4. PANTOPRAZOLE SODIUM [Concomitant]
     Dosage: 40 MG, 1X/DAY
     Route: 048
     Dates: start: 20100805, end: 20100817

REACTIONS (2)
  - ALCOHOL POISONING [None]
  - ALCOHOLISM [None]
